FAERS Safety Report 9422375 (Version 1)
Quarter: 2013Q3

REPORT INFORMATION
  Report Type: Spontaneous
  Country: FR (occurrence: FR)
  Receive Date: 20130726
  Receipt Date: 20130726
  Transmission Date: 20140515
  Serious: Yes (Other)
  Sender: FDA-Public Use
  Company Number: FR-ROCHE-1244291

PATIENT
  Age: 56 Year
  Sex: Male

DRUGS (6)
  1. XOLAIR [Suspect]
     Indication: ASTHMA
     Route: 058
     Dates: start: 20130305
  2. XOLAIR [Suspect]
     Route: 058
     Dates: start: 20130429
  3. XOLAIR [Suspect]
     Route: 058
     Dates: start: 20130515
  4. XOLAIR [Suspect]
     Route: 065
     Dates: start: 20130530, end: 20130530
  5. SERETIDE DISKUS [Concomitant]
  6. AERIUS [Concomitant]

REACTIONS (5)
  - Arthralgia [Recovering/Resolving]
  - Eczema [Recovering/Resolving]
  - Myalgia [Recovering/Resolving]
  - Blood creatine phosphokinase increased [Unknown]
  - Aphthous stomatitis [Unknown]
